FAERS Safety Report 8359065-7 (Version None)
Quarter: 2012Q2

REPORT INFORMATION
  Report Type: 
  Country: None (occurrence: None)
  Receive Date: 20120515
  Receipt Date: 20120507
  Transmission Date: 20120825
  Serious: No
  Sender: FDA-Public Use
  Company Number: US-BIOGENIDEC-2012BI016475

PATIENT
  Sex: Female

DRUGS (1)
  1. TYSABRI [Suspect]
     Indication: MULTIPLE SCLEROSIS
     Route: 042
     Dates: start: 20110404

REACTIONS (5)
  - DYSMENORRHOEA [None]
  - DRUG EFFECT DECREASED [None]
  - ANXIETY [None]
  - THROMBOSIS [None]
  - GAIT DISTURBANCE [None]
